FAERS Safety Report 8959900 (Version 1)
Quarter: 2012Q4

REPORT INFORMATION
  Report Type: 
  Country: US (occurrence: US)
  Receive Date: 20121211
  Receipt Date: 20121211
  Transmission Date: 20130627
  Serious: Yes (Other)
  Sender: FDA-Public Use
  Company Number: US-TEVA-374932USA

PATIENT

DRUGS (1)
  1. AZILECT [Suspect]

REACTIONS (2)
  - Blindness unilateral [Unknown]
  - Blindness [Unknown]
